FAERS Safety Report 8066816-8 (Version None)
Quarter: 2012Q1

REPORT INFORMATION
  Report Type: 
  Country: None (occurrence: None)
  Receive Date: 20120117
  Receipt Date: 20120102
  Transmission Date: 20120608
  Serious: Yes (Hospitalization)
  Sender: FDA-Public Use
  Company Number: 2012FR0002

PATIENT
  Age: 14 Year
  Sex: Female

DRUGS (3)
  1. KINERET [Suspect]
     Indication: INFLAMMATION
     Dosage: SUBCUTANEOUS
     Route: 058
     Dates: start: 20110201
  2. KINERET [Suspect]
     Indication: CYTOLYTIC HEPATITIS
     Dosage: SUBCUTANEOUS
     Route: 058
     Dates: start: 20110201
  3. CERAZETTE (DESOGESTREL) [Concomitant]

REACTIONS (1)
  - CYTOLYTIC HEPATITIS [None]
